FAERS Safety Report 25186503 (Version 1)
Quarter: 2025Q2

REPORT INFORMATION
  Report Type: Spontaneous
  Country: US (occurrence: US)
  Receive Date: 20250411
  Receipt Date: 20250411
  Transmission Date: 20250716
  Serious: Yes (Death, Other)
  Sender: PROCTER AND GAMBLE
  Company Number: US-PROCTER+GAMBLE-PH25002662

PATIENT
  Age: 28 Year
  Sex: Male

DRUGS (11)
  1. DIPHENHYDRAMINE HYDROCHLORIDE [Suspect]
     Active Substance: DIPHENHYDRAMINE HYDROCHLORIDE
  2. ALCOHOL [Suspect]
     Active Substance: ALCOHOL
  3. KETAMINE [Suspect]
     Active Substance: KETAMINE
  4. MIDOMAFETAMINE [Suspect]
     Active Substance: MIDOMAFETAMINE
  5. TENAMFETAMINE [Suspect]
     Active Substance: TENAMFETAMINE
  6. CETIRIZINE [Suspect]
     Active Substance: CETIRIZINE HYDROCHLORIDE
  7. PAROXETINE [Suspect]
     Active Substance: PAROXETINE
  8. PHENACETIN [Suspect]
     Active Substance: PHENACETIN
  9. NORKETAMINE [Suspect]
     Active Substance: NORKETAMINE
  10. MDE [Suspect]
     Active Substance: MDE
  11. DRONABINOL [Suspect]
     Active Substance: DRONABINOL

REACTIONS (7)
  - Accidental death [Fatal]
  - Toxicity to various agents [Fatal]
  - Drug abuse [Fatal]
  - Abnormal behaviour [Fatal]
  - Persecutory delusion [Fatal]
  - Injury [Fatal]
  - Postmortem blood drug level abnormal [Fatal]
